FAERS Safety Report 6382227-5 (Version None)
Quarter: 2009Q3

REPORT INFORMATION
  Report Type: 
  Country: None (occurrence: None)
  Receive Date: 20090925
  Receipt Date: 20090914
  Transmission Date: 20100115
  Serious: Yes (Death, Hospitalization)
  Sender: FDA-Public Use
  Company Number: FABR-1000817

PATIENT
  Age: 48 Year
  Sex: Male
  Weight: 55 kg

DRUGS (16)
  1. FABRAZYME [Suspect]
     Indication: FABRY'S DISEASE
     Dosage: 1 MG, Q2W, INTRAVENOUS
     Route: 042
     Dates: start: 20060701, end: 20090423
  2. FABRAZYME [Suspect]
  3. FABRAZYME [Suspect]
     Dosage: 1 MG/KG. Q2W, INTRAVENOUS
     Route: 042
     Dates: start: 20090317, end: 20090317
  4. FABRAZYME [Suspect]
  5. METOPROLOL (METOPROLOL) [Concomitant]
  6. COUMADIN [Concomitant]
  7. CYCLOSPORINE [Concomitant]
  8. LASIX [Concomitant]
  9. MYCOPHENOLATE SODIUM (MYCOPHENOLATE SODIUM) [Concomitant]
  10. PROTONIX [Concomitant]
  11. VITAMIN A [Concomitant]
  12. PREDNISONE TAB [Concomitant]
  13. RENAGEL [Concomitant]
  14. ZINC OXIDE (ZINC OXIDE) [Concomitant]
  15. TYLENOL [Concomitant]
  16. CIPROFLOXACIN [Concomitant]

REACTIONS (11)
  - ABDOMINAL INFECTION [None]
  - ATRIAL FIBRILLATION [None]
  - CHRONIC ALLOGRAFT NEPHROPATHY [None]
  - DIVERTICULAR PERFORATION [None]
  - ENTEROCOCCAL INFECTION [None]
  - GLOMERULONEPHRITIS [None]
  - MULTI-ORGAN FAILURE [None]
  - PROCEDURAL COMPLICATION [None]
  - RENAL FAILURE [None]
  - SEPSIS [None]
  - URINARY TRACT INFECTION [None]
